FAERS Safety Report 5017234-8 (Version None)
Quarter: 2006Q2

REPORT INFORMATION
  Report Type: 
  Country: None (occurrence: None)
  Receive Date: 20060414
  Receipt Date: 20060307
  Transmission Date: 20061013
  Serious: No
  Sender: FDA-Public Use
  Company Number: 2006SP001131

PATIENT
  Age: 52 Year
  Sex: Female

DRUGS (5)
  1. LUNESTA [Suspect]
     Indication: SLEEP DISORDER
     Dosage: SEE IMAGE
     Route: 048
     Dates: start: 20050501
  2. LUNESTA [Suspect]
     Indication: SLEEP DISORDER
     Dosage: SEE IMAGE
     Route: 048
     Dates: start: 20050901
  3. PROZAC [Concomitant]
  4. WELLBUTRIN [Concomitant]
  5. ZIAC [Concomitant]

REACTIONS (1)
  - DYSGEUSIA [None]
